FAERS Safety Report 4445818-4 (Version None)
Quarter: 2004Q3

REPORT INFORMATION
  Report Type: 
  Country: None (occurrence: None)
  Receive Date: 20040903
  Receipt Date: 20040823
  Transmission Date: 20050211
  Serious: Yes (Death)
  Sender: FDA-Public Use
  Company Number: USA-2004-0016131

PATIENT
  Age: 35 Year
  Sex: Male

DRUGS (6)
  1. MORPHINE SULFATE [Suspect]
     Indication: PAIN
     Dosage: UNKNOWN
     Route: 065
     Dates: start: 20020601
  2. METHADONE HCL [Suspect]
     Dosage: UNKNOWN
     Route: 065
  3. LORAZEPAM [Suspect]
     Dosage: UNK
     Route: 065
  4. MEPERIDINE HCL [Suspect]
     Dosage: UNK
     Route: 065
  5. NICOTINE [Suspect]
     Dosage: UNK
     Route: 065
  6. CAFFEINE (CAFFEINE) [Suspect]
     Dosage: UNK
     Route: 065

REACTIONS (7)
  - ACCIDENTAL OVERDOSE [None]
  - ASTHMA [None]
  - CARDIOMEGALY [None]
  - COMA [None]
  - HEPATOSPLENOMEGALY [None]
  - MULTIPLE DRUG OVERDOSE [None]
  - PULMONARY OEDEMA [None]
